FAERS Safety Report 24282743 (Version 2)
Quarter: 2025Q3

REPORT INFORMATION
  Report Type: Report from Study
  Country: CA (occurrence: CA)
  Receive Date: 20240904
  Receipt Date: 20250826
  Transmission Date: 20251021
  Serious: Yes (Hospitalization, Other)
  Sender: GLAXOSMITHKLINE
  Company Number: CA-GLAXOSMITHKLINE-CA2023129548

PATIENT
  Sex: Female

DRUGS (4)
  1. MEPOLIZUMAB [Suspect]
     Active Substance: MEPOLIZUMAB
     Indication: Asthma
     Dosage: 100 MG, Q4W
  2. ZENHALE [Concomitant]
     Active Substance: FORMOTEROL FUMARATE\MOMETASONE FUROATE
     Indication: Product used for unknown indication
  3. SPIRIVA [Concomitant]
     Active Substance: TIOTROPIUM BROMIDE MONOHYDRATE
     Indication: Product used for unknown indication
     Dosage: 2 PUFF(S), QD,2.5 MCG
  4. VENTOLIN [Concomitant]
     Active Substance: ALBUTEROL SULFATE
     Indication: Product used for unknown indication
     Dosage: 2 PUFF(S), BID, 100 MCG (PRN)

REACTIONS (10)
  - Pneumonia [Unknown]
  - Asthma [Unknown]
  - Cough [Unknown]
  - Bronchitis [Unknown]
  - Productive cough [Unknown]
  - Dyspnoea [Unknown]
  - Secretion discharge [Unknown]
  - Influenza [Unknown]
  - Loss of personal independence in daily activities [Unknown]
  - COVID-19 [Unknown]
